FAERS Safety Report 8371314-8 (Version None)
Quarter: 2012Q2

REPORT INFORMATION
  Report Type: 
  Country: None (occurrence: None)
  Receive Date: 20120518
  Receipt Date: 20120504
  Transmission Date: 20120825
  Serious: Yes (Hospitalization, Other)
  Sender: FDA-Public Use
  Company Number: DE-JNJFOC-20120513687

PATIENT
  Age: 24 Year
  Sex: Female

DRUGS (12)
  1. CETIRIZINE HYDROCHLORIDE [Suspect]
     Indication: DERMATITIS ALLERGIC
     Route: 048
     Dates: start: 20100101, end: 20100101
  2. CLOTRIMAZOLE [Suspect]
     Indication: FUNGAL INFECTION
     Route: 067
  3. CETIRIZINE HYDROCHLORIDE [Suspect]
     Route: 048
  4. EBENOL [Suspect]
     Indication: HYPERSENSITIVITY
     Route: 003
     Dates: start: 20101114, end: 20101117
  5. METFORMIN HCL [Suspect]
     Indication: GLUCOSE TOLERANCE IMPAIRED
     Route: 048
     Dates: start: 20100901, end: 20101101
  6. UTROGEST [Suspect]
     Indication: POLYCYSTIC OVARIES
     Route: 048
     Dates: start: 20100912, end: 20101114
  7. EMSER SALT [Suspect]
     Indication: PRODUCT USED FOR UNKNOWN INDICATION
     Route: 045
  8. IODINE [Suspect]
     Indication: NEURAL TUBE DEFECT
     Route: 048
     Dates: start: 20100919, end: 20110404
  9. METFORMIN HCL [Suspect]
     Indication: POLYCYSTIC OVARIES
     Route: 048
     Dates: start: 20100901, end: 20101101
  10. APSOMOL [Suspect]
     Indication: BRONCHITIS
     Route: 055
     Dates: start: 20101220, end: 20101225
  11. FOLIC ACID [Suspect]
     Indication: NEURAL TUBE DEFECT
     Route: 048
     Dates: start: 20100919, end: 20110404
  12. LEVOTHYROXINE SODIUM [Suspect]
     Indication: HYPOTHYROIDISM
     Route: 048
     Dates: start: 20100913, end: 20110626

REACTIONS (3)
  - PREMATURE RUPTURE OF MEMBRANES [None]
  - GESTATIONAL DIABETES [None]
  - MATERNAL EXPOSURE DURING PREGNANCY [None]
